FAERS Safety Report 17146468 (Version 1)
Quarter: 2019Q4

REPORT INFORMATION
  Report Type: Spontaneous
  Country: NL (occurrence: NL)
  Receive Date: 20191212
  Receipt Date: 20191212
  Transmission Date: 20200122
  Serious: Yes (Other)
  Sender: FDA-Public Use
  Company Number: NL-MYLANLABS-2019M1121885

PATIENT
  Age: 81 Year
  Sex: Female
  Weight: 83 kg

DRUGS (7)
  1. ALENDRONINEZUUR [Suspect]
     Active Substance: ALENDRONIC ACID
     Indication: OSTEOPOROSIS
     Dosage: 1 DOSAGE FORM,QW(1X/WEEK)
     Route: 048
     Dates: start: 20191002, end: 20191021
  2. ATORVASTATINE                      /01326101/ [Concomitant]
     Active Substance: ATORVASTATIN
     Dosage: 20 MILLIGRAM, QD(1.1T)
     Dates: start: 20110517
  3. ASCAL BRISPER CARDIO NEURO [Concomitant]
     Dosage: 100 MILLIGRAM, QD(1.1T)
     Dates: start: 20110817
  4. OMEPRAZOL                          /00661201/ [Concomitant]
     Active Substance: OMEPRAZOLE
     Dosage: 40 MILLIGRAM, QD(1.1C)
     Dates: start: 20100201
  5. CALCI CHEW D3 [Concomitant]
     Active Substance: CALCIUM CARBONATE\CHOLECALCIFEROL
     Dosage: 1 DOSAGE FORM, QD(1.1T)(1,25G/800IE)
     Dates: start: 20171107
  6. LISINOPRIL. [Concomitant]
     Active Substance: LISINOPRIL
     Dosage: 20 MILLIGRAM, QD(1.1T)
     Dates: start: 20051130
  7. METOPROLOLSUCCINAAT [Concomitant]
     Active Substance: METOPROLOL SUCCINATE
     Dosage: 50 MILLIGRAM, QD(1.1T)
     Dates: start: 20051130

REACTIONS (3)
  - Erysipelas [Recovered/Resolved]
  - Myalgia [Recovered/Resolved]
  - Pyrexia [Recovered/Resolved]

NARRATIVE: CASE EVENT DATE: 20191003
